FAERS Safety Report 18074349 (Version 6)
Quarter: 2020Q3

REPORT INFORMATION
  Report Type: Report from Study
  Country: BR (occurrence: BR)
  Receive Date: 20200727
  Receipt Date: 20200824
  Transmission Date: 20201103
  Serious: Yes (Death, Life-Threatening, Hospitalization)
  Sender: FDA-Public Use
  Company Number: BR-SA-2020SA172340

PATIENT

DRUGS (16)
  1. DIPYRONE [Concomitant]
     Active Substance: DIPYRONE
     Indication: PRE-EXISTING DISEASE
     Dosage: 1 G, QID
     Route: 042
     Dates: start: 20200625, end: 20200627
  2. DIPYRONE [Concomitant]
     Active Substance: DIPYRONE
     Dosage: 1 G, QID
     Route: 042
     Dates: start: 20200703, end: 20200709
  3. NORADRENALIN [NOREPINEPHRINE] [Concomitant]
     Active Substance: NOREPINEPHRINE
     Dosage: 20 MG, PRN
     Route: 042
     Dates: start: 20200628, end: 20200628
  4. NORADRENALIN [NOREPINEPHRINE] [Concomitant]
     Active Substance: NOREPINEPHRINE
     Dosage: 20 MG, PRN
     Route: 042
     Dates: start: 20200706, end: 20200709
  5. RINGERS LACTATE [Concomitant]
     Active Substance: CALCIUM CHLORIDE\POTASSIUM CHLORIDE\SODIUM LACTATE
     Indication: PROPHYLAXIS
     Dosage: 500 ML, 1X
     Route: 042
     Dates: start: 20200629, end: 20200629
  6. HEPARIN [Concomitant]
     Active Substance: HEPARIN SODIUM
     Indication: PROPHYLAXIS
     Dosage: 5 ML, QD
     Route: 042
     Dates: start: 20200706, end: 20200708
  7. SARILUMAB [Suspect]
     Active Substance: SARILUMAB
     Indication: COVID-19
     Dosage: INTENDED DOSE 1 BAG,INFUSION RATE OF 100ML/H, 1X
     Route: 042
     Dates: start: 20200626, end: 20200626
  8. DIPYRONE [Concomitant]
     Active Substance: DIPYRONE
     Dosage: 1 G, QID
     Route: 042
     Dates: start: 20200629, end: 20200630
  9. NORADRENALIN [NOREPINEPHRINE] [Concomitant]
     Active Substance: NOREPINEPHRINE
     Indication: PRE-EXISTING DISEASE
     Dosage: 20 MG, PRN
     Route: 042
     Dates: start: 20200626, end: 20200626
  10. NORADRENALIN [NOREPINEPHRINE] [Concomitant]
     Active Substance: NOREPINEPHRINE
     Dosage: 20 MG, PRN
     Route: 042
     Dates: start: 20200701, end: 20200704
  11. CEFTRIAXONE. [Concomitant]
     Active Substance: CEFTRIAXONE
     Indication: PRE-EXISTING DISEASE
     Dosage: 1 G, QD
     Route: 042
     Dates: start: 20200624, end: 20200701
  12. RED BLOOD CELLS [Concomitant]
     Active Substance: HUMAN RED BLOOD CELL
     Dosage: 2 BAG 1X
     Route: 042
     Dates: start: 20200706, end: 20200706
  13. OSELTAMIVIR [Concomitant]
     Active Substance: OSELTAMIVIR
     Indication: PRE-EXISTING DISEASE
     Dosage: 75 MG, QD
     Route: 042
     Dates: start: 20200624, end: 20200626
  14. POTASSIUM PHOSPHATE [POTASSIUM PHOSPHATE DIBASIC] [Concomitant]
     Dosage: 10 ML, QD
     Route: 042
     Dates: start: 20200630, end: 20200703
  15. AZITROMICINA [Concomitant]
     Active Substance: AZITHROMYCIN DIHYDRATE
     Indication: PRE-EXISTING DISEASE
     Dosage: 500 MG, QD
     Route: 042
     Dates: start: 20200624, end: 20200629
  16. DEXAMETHASONE. [Concomitant]
     Active Substance: DEXAMETHASONE
     Indication: PRE-EXISTING DISEASE
     Dosage: 6 MG, QD
     Route: 042
     Dates: start: 20200624, end: 20200703

REACTIONS (3)
  - Alanine aminotransferase increased [Recovered/Resolved]
  - Septic shock [Fatal]
  - Pneumonia [Not Recovered/Not Resolved]

NARRATIVE: CASE EVENT DATE: 20200701
